FAERS Safety Report 7936744-4 (Version None)
Quarter: 2011Q4

REPORT INFORMATION
  Report Type: 
  Country: None (occurrence: None)
  Receive Date: 20111123
  Receipt Date: 20111115
  Transmission Date: 20120403
  Serious: Yes (Hospitalization)
  Sender: FDA-Public Use
  Company Number: CL-ROCHE-1006312

PATIENT
  Sex: Female
  Weight: 39 kg

DRUGS (2)
  1. LEVOTHYROXINE SODIUM [Concomitant]
     Indication: HYPOTHYROIDISM
     Route: 048
     Dates: start: 20111104
  2. XELODA [Suspect]
     Indication: COLON CANCER
     Route: 048
     Dates: start: 20110804, end: 20111104

REACTIONS (6)
  - HEADACHE [None]
  - LOSS OF CONSCIOUSNESS [None]
  - DIARRHOEA [None]
  - ABDOMINAL PAIN UPPER [None]
  - MOBILITY DECREASED [None]
  - VOMITING [None]
